FAERS Safety Report 19104871 (Version 1)
Quarter: 2021Q2

REPORT INFORMATION
  Report Type: Spontaneous
  Country: BE (occurrence: BE)
  Receive Date: 20210408
  Receipt Date: 20210408
  Transmission Date: 20210717
  Serious: Yes (Hospitalization, Other)
  Sender: FDA-Public Use
  Company Number: BE-SCIEGEN-2021SCILIT00343

PATIENT
  Age: 69 Year
  Sex: Female

DRUGS (2)
  1. SERTRALINE HYDROCHLORIDE TABLETS [Suspect]
     Active Substance: SERTRALINE HYDROCHLORIDE
     Indication: DEPRESSION
     Route: 065
     Dates: start: 201606, end: 201708
  2. BUPROPION. [Interacting]
     Active Substance: BUPROPION
     Indication: EOSINOPHILIC PNEUMONIA
     Route: 065

REACTIONS (1)
  - Eosinophilic pneumonia [Recovering/Resolving]
